FAERS Safety Report 15010111 (Version 2)
Quarter: 2018Q2

REPORT INFORMATION
  Report Type: Spontaneous
  Country: US (occurrence: US)
  Receive Date: 20180614
  Receipt Date: 20180619
  Transmission Date: 20180711
  Serious: Yes (Hospitalization)
  Sender: FDA-Public Use
  Company Number: US-PFIZER INC-2018241157

PATIENT
  Age: 71 Year
  Sex: Female
  Weight: 93.44 kg

DRUGS (5)
  1. LYRICA [Suspect]
     Active Substance: PREGABALIN
     Dosage: 150 MG, DAILY(FOR 1 WEEK )
     Dates: start: 2017, end: 2017
  2. GABAPENTIN. [Concomitant]
     Active Substance: GABAPENTIN
     Dosage: 800 MG, 4X/DAY
  3. LYRICA [Suspect]
     Active Substance: PREGABALIN
     Indication: NEUROPATHY PERIPHERAL
     Dosage: 150 MG, 3X/DAY
     Dates: start: 201709, end: 2017
  4. LYRICA [Suspect]
     Active Substance: PREGABALIN
     Dosage: 300 MG, DAILY(FOR 2 WEEKS )
     Dates: start: 2017, end: 2017
  5. LYRICA [Suspect]
     Active Substance: PREGABALIN
     Dosage: 150 MG, 3X/DAY
     Dates: start: 2017

REACTIONS (7)
  - Condition aggravated [Not Recovered/Not Resolved]
  - Osteoporosis [Unknown]
  - Limb discomfort [Unknown]
  - Drug ineffective [Unknown]
  - Pain [Not Recovered/Not Resolved]
  - Pneumonia [Recovered/Resolved]
  - Malaise [Unknown]

NARRATIVE: CASE EVENT DATE: 201803
